FAERS Safety Report 5670749-1 (Version None)
Quarter: 2008Q1

REPORT INFORMATION
  Report Type: 
  Country: None (occurrence: None)
  Receive Date: 20080318
  Receipt Date: 20080307
  Transmission Date: 20080703
  Serious: Yes (Hospitalization)
  Sender: FDA-Public Use
  Company Number: PHBS2007JP21528

PATIENT
  Age: 57 Year
  Sex: Male
  Weight: 67 kg

DRUGS (5)
  1. GLIMICRON [Concomitant]
     Dosage: 750 MG/DAY
     Dates: start: 20060218, end: 20070701
  2. BASEN [Suspect]
     Indication: DIABETES MELLITUS
     Dosage: 0.6 MG/DAY
     Route: 048
     Dates: start: 20070720, end: 20070818
  3. FASTIC [Suspect]
     Indication: DIABETES MELLITUS
     Dosage: 270 MG/DAY
     Route: 048
     Dates: start: 20070804, end: 20071006
  4. STARSIS [Suspect]
     Indication: DIABETES MELLITUS
     Dosage: 270MG/DAY
     Route: 048
     Dates: start: 20070713, end: 20070803
  5. GLYCORAN [Concomitant]
     Dosage: 750 MG, UNK
     Dates: start: 20070303, end: 20070701

REACTIONS (14)
  - ALANINE AMINOTRANSFERASE INCREASED [None]
  - ASPARTATE AMINOTRANSFERASE INCREASED [None]
  - BLOOD ALKALINE PHOSPHATASE INCREASED [None]
  - BLOOD GLUCOSE FLUCTUATION [None]
  - BLOOD LACTATE DEHYDROGENASE INCREASED [None]
  - FATIGUE [None]
  - HEPATIC FUNCTION ABNORMAL [None]
  - HYPOTENSION [None]
  - LYMPHOCYTE STIMULATION TEST [None]
  - MALAISE [None]
  - NOCTURIA [None]
  - POLLAKIURIA [None]
  - POLYURIA [None]
  - THIRST [None]
